FAERS Safety Report 25541343 (Version 1)
Quarter: 2025Q3

REPORT INFORMATION
  Report Type: Spontaneous
  Country: GB (occurrence: GB)
  Receive Date: 20250711
  Receipt Date: 20250711
  Transmission Date: 20251020
  Serious: Yes (Other)
  Sender: ACCORD
  Company Number: GB-Accord-189976

PATIENT
  Age: 59 Year
  Sex: Female

DRUGS (2)
  1. SIMVASTATIN [Suspect]
     Active Substance: SIMVASTATIN
     Indication: Hyperlipidaemia
  2. ATORVASTATIN [Suspect]
     Active Substance: ATORVASTATIN
     Indication: Hyperlipidaemia

REACTIONS (1)
  - Immune-mediated myositis [Recovered/Resolved]

NARRATIVE: CASE EVENT DATE: 20120101
